FAERS Safety Report 6526595-X (Version None)
Quarter: 2009Q4

REPORT INFORMATION
  Report Type: 
  Country: None (occurrence: None)
  Receive Date: 20091230
  Receipt Date: 20091219
  Transmission Date: 20100525
  Serious: Yes (Other)
  Sender: FDA-Public Use
  Company Number: SPV1-2009-02591

PATIENT

DRUGS (1)
  1. INTUNIV [Suspect]
     Indication: DRUG USE FOR UNKNOWN INDICATION
     Dosage: MG, ORAL
     Route: 048
     Dates: start: 20090101

REACTIONS (1)
  - ADVERSE EVENT [None]
